FAERS Safety Report 5734021-3 (Version None)
Quarter: 2008Q2

REPORT INFORMATION
  Report Type: 
  Country: None (occurrence: None)
  Receive Date: 20080509
  Receipt Date: 20080429
  Transmission Date: 20081010
  Serious: Yes (Death, Other)
  Sender: FDA-Public Use
  Company Number: FR-PFIZER INC-2008038006

PATIENT
  Sex: Male

DRUGS (3)
  1. VORICONAZOLE [Suspect]
     Route: 048
     Dates: start: 20031001
  2. FLUCONAZOLE [Concomitant]
     Dosage: DAILY DOSE:400MG
     Route: 042
  3. FLUCONAZOLE [Concomitant]
     Dosage: DAILY DOSE:200MG
     Route: 048

REACTIONS (2)
  - PHOTOSENSITIVITY REACTION [None]
  - SQUAMOUS CELL CARCINOMA [None]
